FAERS Safety Report 7006428-8 (Version None)
Quarter: 2010Q3

REPORT INFORMATION
  Report Type: 
  Country: None (occurrence: None)
  Receive Date: 20100910
  Receipt Date: 20100821
  Transmission Date: 20110219
  Serious: Yes (Other)
  Sender: FDA-Public Use
  Company Number: 2010SP047542

PATIENT
  Age: 65 Year
  Sex: Male
  Weight: 57.5 kg

DRUGS (4)
  1. PEG-INTRON [Suspect]
     Indication: HEPATITIS C
     Dosage: 80 MCG;QW;SC
     Route: 058
     Dates: start: 20091218, end: 20100506
  2. REBETOL [Suspect]
     Indication: HEPATITIS C
     Dosage: 600 MG;QD;PO, 200 MG;QD;PO
     Route: 048
     Dates: start: 20091218, end: 20100422
  3. REBETOL [Suspect]
     Indication: HEPATITIS C
     Dosage: 600 MG;QD;PO, 200 MG;QD;PO
     Route: 048
     Dates: start: 20100430, end: 20100506
  4. NOVORAPID [Concomitant]

REACTIONS (4)
  - DEPRESSION [None]
  - DIABETIC NEPHROPATHY [None]
  - FUNDOSCOPY ABNORMAL [None]
  - NEPHROTIC SYNDROME [None]
